FAERS Safety Report 12579897 (Version 2)
Quarter: 2017Q1

REPORT INFORMATION
  Report Type: Spontaneous
  Country: US (occurrence: US)
  Receive Date: 20160721
  Receipt Date: 20170323
  Transmission Date: 20170428
  Serious: Yes (Hospitalization)
  Sender: FDA-Public Use
  Company Number: US-ACTELION-A-US2016-139218

PATIENT
  Age: 13 Year
  Sex: Male

DRUGS (19)
  1. ONFI [Concomitant]
     Active Substance: CLOBAZAM
     Dosage: 2.5 MG/ML, QD
     Route: 048
     Dates: start: 20160215
  2. REGLAN [Concomitant]
     Active Substance: METOCLOPRAMIDE HYDROCHLORIDE
     Dosage: 3.5 MG, TID
     Route: 048
     Dates: start: 20160113
  3. OXYGEN. [Concomitant]
     Active Substance: OXYGEN
     Dosage: 1 DOSE AS DIRECTED
     Route: 045
     Dates: start: 20140210
  4. ZAVESCA [Suspect]
     Active Substance: MIGLUSTAT
     Indication: NIEMANN-PICK DISEASE
     Dosage: 100 MG QAM, 100 MG MIDDAY, 200 MG QPM
     Route: 048
     Dates: start: 20130225
  5. ZAVESCA [Suspect]
     Active Substance: MIGLUSTAT
     Dosage: 1AM, 1PM AND 2 AT HS, TID
     Route: 048
     Dates: start: 20130304
  6. PATANASE [Concomitant]
     Active Substance: OLOPATADINE HYDROCHLORIDE
     Dosage: 1 SPRAY EACH NOSTRIL, QD
     Route: 055
     Dates: start: 20140210
  7. DEPAKENE [Concomitant]
     Active Substance: VALPROIC ACID
     Dosage: 7.5 ML, TID
     Route: 048
  8. DIAZEPAM. [Concomitant]
     Active Substance: DIAZEPAM
     Dosage: 15 MG, PRN
     Route: 048
     Dates: start: 20140210
  9. LORAZEPAM. [Concomitant]
     Active Substance: LORAZEPAM
     Indication: SEIZURE
     Dosage: 2 MG, PRN
     Route: 048
     Dates: start: 20140210
  10. RISPERIDONE. [Concomitant]
     Active Substance: RISPERIDONE
     Dosage: 0.5 MG, TID (1 TABLET) ODT
     Route: 048
     Dates: start: 20140210
  11. TRANSDERM SCOP [Concomitant]
     Active Substance: SCOPOLAMINE
     Dosage: 1.5 MG/72 HR
     Route: 062
     Dates: start: 20140210
  12. DIASTAT [Concomitant]
     Active Substance: DIAZEPAM
     Indication: SEIZURE
     Dosage: 15 MG, PRN
  13. CULTURELLE [Concomitant]
     Active Substance: LACTOBACILLUS RHAMNOSUS
     Dosage: 1 PACK QD
     Route: 048
     Dates: start: 20140210
  14. ZOMETA [Concomitant]
     Active Substance: ZOLEDRONIC ACID
     Dosage: 1 DOSE IV Q6MONTHS
     Dates: start: 20160921
  15. FLUTICASONE PROPIONATE. [Concomitant]
     Active Substance: FLUTICASONE PROPIONATE
     Dosage: 50 MCG, (2 PUFF) DAILY
     Route: 055
     Dates: start: 20140210
  16. DEPAKENE [Concomitant]
     Active Substance: VALPROIC ACID
     Dosage: 5 ML, TID
     Route: 048
     Dates: start: 20140210
  17. BANZEL [Concomitant]
     Active Substance: RUFINAMIDE
     Dosage: 100 MG, BID
  18. CLONAZEPAM. [Concomitant]
     Active Substance: CLONAZEPAM
     Indication: SEIZURE
     Dosage: 1 MG, PRN
  19. MIRALAX [Concomitant]
     Active Substance: POLYETHYLENE GLYCOL 3350
     Dosage: 1 DOSE, QD
     Route: 048
     Dates: start: 20140210

REACTIONS (4)
  - Tachycardia [Recovered/Resolved]
  - Pneumonia [Recovered/Resolved]
  - Dyspnoea [Recovered/Resolved]
  - Oxygen saturation decreased [Recovered/Resolved]

NARRATIVE: CASE EVENT DATE: 20160701
